FAERS Safety Report 25961809 (Version 1)
Quarter: 2025Q4

REPORT INFORMATION
  Report Type: Spontaneous
  Country: US (occurrence: US)
  Receive Date: 20251027
  Receipt Date: 20251027
  Transmission Date: 20260117
  Serious: Yes (Other)
  Sender: DERMARITE INDUSTRIES
  Company Number: US-DERMARITE INDUSTRIES, LLC.-2025-DER-US000075

PATIENT

DRUGS (7)
  1. ALOE [Suspect]
     Active Substance: ALOE
     Indication: Therapeutic skin care topical
     Dosage: UNK
     Route: 061
  2. ALOE [Suspect]
     Active Substance: ALOE
     Dosage: UNK
     Route: 061
  3. ALOE [Suspect]
     Active Substance: ALOE
     Indication: Therapeutic skin care topical
     Dosage: UNK
     Route: 061
  4. ALOE [Suspect]
     Active Substance: ALOE
     Dosage: UNK
     Route: 061
  5. COSMETICS [Suspect]
     Active Substance: COSMETICS
     Indication: Product used for unknown indication
     Dosage: UNK
     Route: 061
  6. UTRASURE [Suspect]
     Active Substance: ALUMINUM SESQUICHLOROHYDRATE
     Indication: Therapeutic skin care topical
     Dosage: UNK
     Route: 061
  7. UTRASURE [Suspect]
     Active Substance: ALUMINUM SESQUICHLOROHYDRATE
     Dosage: UNK
     Route: 061

REACTIONS (1)
  - Seizure [Recovered/Resolved]

NARRATIVE: CASE EVENT DATE: 20230701
